FAERS Safety Report 16223931 (Version 1)
Quarter: 2019Q2

REPORT INFORMATION
  Report Type: Report from Study
  Country: None (occurrence: CA)
  Receive Date: 20190422
  Receipt Date: 20190422
  Transmission Date: 20190711
  Serious: Yes (Other)
  Sender: FDA-Public Use
  Company Number: CA-ABBVIE-19K-028-2752780-00

PATIENT
  Age: 46 Year
  Sex: Male

DRUGS (1)
  1. HUMIRA [Suspect]
     Active Substance: ADALIMUMAB
     Indication: CROHN^S DISEASE
     Route: 058
     Dates: start: 20130206

REACTIONS (3)
  - Surgery [Unknown]
  - Haemorrhoidal haemorrhage [Not Recovered/Not Resolved]
  - Incisional hernia [Unknown]

NARRATIVE: CASE EVENT DATE: 20190416
